FAERS Safety Report 9590703 (Version 1)
Quarter: 2013Q4

REPORT INFORMATION
  Report Type: Spontaneous
  Country: US (occurrence: US)
  Receive Date: 20131003
  Receipt Date: 20131003
  Transmission Date: 20140711
  Serious: No
  Sender: FDA-Public Use
  Company Number: US-AMGEN-USASP2012075872

PATIENT
  Sex: Male

DRUGS (2)
  1. ENBREL [Suspect]
     Indication: RHEUMATOID ARTHRITIS
     Dosage: 50 MG, QWK
     Dates: start: 20110518, end: 201210
  2. ORENCIA [Concomitant]
     Dosage: UNK
     Dates: start: 201210

REACTIONS (2)
  - Condition aggravated [Recovered/Resolved]
  - Gait disturbance [Recovered/Resolved]
